FAERS Safety Report 26182496 (Version 1)
Quarter: 2025Q4

REPORT INFORMATION
  Report Type: Spontaneous
  Country: CN (occurrence: CN)
  Receive Date: 20251221
  Receipt Date: 20251221
  Transmission Date: 20260118
  Serious: Yes (Other)
  Sender: ACCORD
  Company Number: CN-MLMSERVICE-20251201-PI735674-00128-1

PATIENT
  Age: 11 Year
  Sex: Male

DRUGS (20)
  1. ETOPOSIDE [Suspect]
     Active Substance: ETOPOSIDE
     Indication: Extra-osseous Ewing^s sarcoma
     Dosage: 5 CYCLES
     Dates: start: 20220329, end: 20220704
  2. CYCLOPHOSPHAMIDE [Suspect]
     Active Substance: CYCLOPHOSPHAMIDE
     Indication: Extra-osseous Ewing^s sarcoma
     Dosage: 5 CYCLES
     Dates: start: 20220329, end: 20220704
  3. DOXORUBICIN [Suspect]
     Active Substance: DOXORUBICIN
     Indication: Extra-osseous Ewing^s sarcoma
     Dosage: 5 CYCLES
     Dates: start: 20220329, end: 20220704
  4. IFOSFAMIDE [Suspect]
     Active Substance: IFOSFAMIDE
     Indication: Extra-osseous Ewing^s sarcoma
     Dosage: 5 CYCLES
     Dates: start: 20220329, end: 20220704
  5. VINCRISTINE [Suspect]
     Active Substance: VINCRISTINE
     Indication: Extra-osseous Ewing^s sarcoma
     Dosage: 5 CYCLES
     Dates: start: 20220329, end: 20220704
  6. ETOPOSIDE [Suspect]
     Active Substance: ETOPOSIDE
     Indication: Mediastinum neoplasm
     Dosage: 5 CYCLES
     Dates: start: 20220329, end: 20220704
  7. VINCRISTINE [Suspect]
     Active Substance: VINCRISTINE
     Indication: Extra-osseous Ewing^s sarcoma
     Dates: start: 20220801, end: 2022
  8. VINCRISTINE [Suspect]
     Active Substance: VINCRISTINE
     Indication: Mediastinum neoplasm
     Dosage: 5 CYCLES
     Dates: start: 20220329, end: 20220704
  9. CYCLOPHOSPHAMIDE [Suspect]
     Active Substance: CYCLOPHOSPHAMIDE
     Indication: Extra-osseous Ewing^s sarcoma
     Dates: start: 20220801, end: 2022
  10. CYCLOPHOSPHAMIDE [Suspect]
     Active Substance: CYCLOPHOSPHAMIDE
     Indication: Mediastinum neoplasm
     Dosage: 5 CYCLES
     Dates: start: 20220329, end: 20220704
  11. IFOSFAMIDE [Suspect]
     Active Substance: IFOSFAMIDE
     Indication: Extra-osseous Ewing^s sarcoma
     Dates: start: 20220801, end: 2022
  12. IFOSFAMIDE [Suspect]
     Active Substance: IFOSFAMIDE
     Indication: Mediastinum neoplasm
     Dosage: 5 CYCLES
     Dates: start: 20220329, end: 20220704
  13. DOXORUBICIN [Suspect]
     Active Substance: DOXORUBICIN
     Indication: Mediastinum neoplasm
     Dates: start: 20220801, end: 2022
  14. ETOPOSIDE [Suspect]
     Active Substance: ETOPOSIDE
     Indication: Mediastinum neoplasm
     Dosage: 5 CYCLES
     Dates: start: 20220801, end: 2022
  15. VINCRISTINE [Suspect]
     Active Substance: VINCRISTINE
     Indication: Mediastinum neoplasm
     Dates: start: 20220801, end: 2022
  16. CYCLOPHOSPHAMIDE [Suspect]
     Active Substance: CYCLOPHOSPHAMIDE
     Indication: Mediastinum neoplasm
     Dates: start: 20220801, end: 2022
  17. IFOSFAMIDE [Suspect]
     Active Substance: IFOSFAMIDE
     Indication: Mediastinum neoplasm
     Dates: start: 20220801, end: 2022
  18. DOXORUBICIN [Suspect]
     Active Substance: DOXORUBICIN
     Indication: Extra-osseous Ewing^s sarcoma
     Dates: start: 20220801, end: 2022
  19. DOXORUBICIN [Suspect]
     Active Substance: DOXORUBICIN
     Indication: Mediastinum neoplasm
     Dosage: 5 CYCLES
     Dates: start: 20220329, end: 20220704
  20. ETOPOSIDE [Suspect]
     Active Substance: ETOPOSIDE
     Indication: Extra-osseous Ewing^s sarcoma
     Dates: start: 20220801, end: 2022

REACTIONS (2)
  - Hepatic function abnormal [Recovered/Resolved]
  - White blood cell count decreased [Recovered/Resolved]

NARRATIVE: CASE EVENT DATE: 20220101
